FAERS Safety Report 7869901-6 (Version None)
Quarter: 2011Q4

REPORT INFORMATION
  Report Type: 
  Country: None (occurrence: None)
  Receive Date: 20111028
  Receipt Date: 20111028
  Transmission Date: 20120403
  Serious: No
  Sender: FDA-Public Use
  Company Number: None

PATIENT
  Age: 60 Year
  Sex: Male

DRUGS (1)
  1. VARENICLINE [Suspect]
     Indication: NICOTINE DEPENDENCE
     Dosage: 0.5 MG EVERY DAY PO
     Route: 048
     Dates: start: 20101010, end: 20111015

REACTIONS (2)
  - AGGRESSION [None]
  - HOSTILITY [None]
